FAERS Safety Report 4497346-8 (Version None)
Quarter: 2004Q4

REPORT INFORMATION
  Report Type: 
  Country: None (occurrence: None)
  Receive Date: 20041110
  Receipt Date: 20040914
  Transmission Date: 20050328
  Serious: Yes (Hospitalization)
  Sender: FDA-Public Use
  Company Number: PHBS2004CO12511

PATIENT
  Age: 76 Year
  Sex: Male

DRUGS (2)
  1. DIOVAN HCT [Suspect]
     Indication: HYPERTENSION
     Dosage: VAL 160 / HCT 12.5 MG/DAY
     Route: 048
  2. PSEUDOEPHEDRINE HCL [Suspect]

REACTIONS (1)
  - CEREBROVASCULAR ACCIDENT [None]
